APPROVED DRUG PRODUCT: VANCOR
Active Ingredient: VANCOMYCIN HYDROCHLORIDE
Strength: EQ 500MG BASE/VIAL
Dosage Form/Route: INJECTABLE;INJECTION
Application: A062956 | Product #001
Applicant: PHARMACIA AND UPJOHN CO
Approved: Aug 1, 1988 | RLD: No | RS: No | Type: DISCN